FAERS Safety Report 9244499 (Version 1)
Quarter: 2013Q2

REPORT INFORMATION
  Report Type: Spontaneous
  Country: ES (occurrence: ES)
  Receive Date: 20130422
  Receipt Date: 20130422
  Transmission Date: 20140414
  Serious: Yes (Other)
  Sender: FDA-Public Use
  Company Number: ES-AMGEN-ESPSP2013027683

PATIENT
  Age: 64 Year
  Sex: Female

DRUGS (3)
  1. VECTIBIX [Suspect]
     Indication: COLORECTAL CANCER STAGE IV
     Dosage: 6 MG/KG, Q2WK
  2. FOLINIC ACID [Concomitant]
     Indication: COLORECTAL CANCER STAGE IV
     Dosage: UNK
  3. 5-FLUOROURACIL /00098801/ [Concomitant]
     Indication: COLORECTAL CANCER STAGE IV
     Dosage: UNK

REACTIONS (1)
  - Trichomegaly [Unknown]
